FAERS Safety Report 7789281-4 (Version None)
Quarter: 2011Q3

REPORT INFORMATION
  Report Type: 
  Country: None (occurrence: None)
  Receive Date: 20110930
  Receipt Date: 20110928
  Transmission Date: 20111222
  Serious: Yes (Other)
  Sender: FDA-Public Use
  Company Number: US-GLAXOSMITHKLINE-A0812500A

PATIENT
  Age: 39 Year
  Sex: Female
  Weight: 118.6 kg

DRUGS (10)
  1. ASPIRIN [Concomitant]
  2. LANTUS [Concomitant]
  3. ADVAIR DISKUS 100/50 [Concomitant]
  4. AVANDIA [Suspect]
     Indication: DIABETES MELLITUS
     Dosage: 4MG TWICE PER DAY
     Route: 048
     Dates: start: 20010601, end: 20070701
  5. COREG [Concomitant]
  6. LASIX [Concomitant]
  7. LEXAPRO [Concomitant]
  8. DIOVAN [Concomitant]
  9. ZOCOR [Concomitant]
  10. AVANDAMET [Suspect]
     Indication: DIABETES MELLITUS
     Route: 048
     Dates: start: 20041007, end: 20041208

REACTIONS (7)
  - WEIGHT INCREASED [None]
  - MYOCARDIAL ISCHAEMIA [None]
  - CARDIAC DISORDER [None]
  - TRANSIENT ISCHAEMIC ATTACK [None]
  - CARDIAC FAILURE CONGESTIVE [None]
  - HYPERTENSION [None]
  - CARDIOMYOPATHY [None]
